FAERS Safety Report 25652884 (Version 1)
Quarter: 2025Q3

REPORT INFORMATION
  Report Type: Spontaneous
  Country: GB (occurrence: GB)
  Receive Date: 20250807
  Receipt Date: 20250807
  Transmission Date: 20251020
  Serious: Yes (Other)
  Sender: ALKEM
  Company Number: None

PATIENT
  Age: 27 Year
  Sex: Female

DRUGS (1)
  1. TACROLIMUS [Suspect]
     Active Substance: TACROLIMUS
     Indication: Immunosuppression
     Route: 065
     Dates: start: 20250702

REACTIONS (1)
  - Vaginal haemorrhage [Not Recovered/Not Resolved]

NARRATIVE: CASE EVENT DATE: 20250713
